FAERS Safety Report 7338873-5 (Version None)
Quarter: 2011Q1

REPORT INFORMATION
  Report Type: 
  Country: None (occurrence: None)
  Receive Date: 20110308
  Receipt Date: 20110303
  Transmission Date: 20110831
  Serious: Yes (Hospitalization)
  Sender: FDA-Public Use
  Company Number: FR-ROCHE-763538

PATIENT
  Sex: Female

DRUGS (8)
  1. TANAKAN [Suspect]
     Route: 048
  2. NEXIUM [Suspect]
     Route: 048
  3. RIVAROXABAN [Suspect]
     Indication: PULMONARY EMBOLISM
     Route: 048
     Dates: start: 20080119
  4. XYZAL [Suspect]
     Route: 048
     Dates: start: 20080122
  5. STRUCTUM [Suspect]
     Route: 048
  6. BONIVA [Suspect]
     Route: 048
  7. CACIT D3 [Suspect]
     Indication: OSTEOPOROSIS
     Route: 048
     Dates: start: 20080125
  8. DUPHALAC [Suspect]
     Indication: CONSTIPATION
     Dosage: 2 DOSES ACCORDING TO TRANSIT
     Route: 048
     Dates: start: 20080123

REACTIONS (1)
  - EPISTAXIS [None]
